FAERS Safety Report 7578321-3 (Version None)
Quarter: 2011Q2

REPORT INFORMATION
  Report Type: 
  Country: None (occurrence: None)
  Receive Date: 20110628
  Receipt Date: 20110531
  Transmission Date: 20111010
  Serious: Yes (Other)
  Sender: FDA-Public Use
  Company Number: US-BAYER-2011-032075

PATIENT
  Age: 47 Year
  Sex: Female
  Weight: 75 kg

DRUGS (11)
  1. IMIPRAMINE [Concomitant]
     Indication: DEPRESSION
  2. ZANTAC [Concomitant]
     Indication: PAIN
     Dosage: UNK
     Dates: start: 20080401
  3. IBUPROFEN [Concomitant]
  4. VENTOLIN HFA [Concomitant]
  5. ACIPHEX [Concomitant]
     Indication: ABDOMINAL PAIN
     Dosage: UNK
     Route: 048
     Dates: start: 20071212
  6. PRILOSEC [Concomitant]
     Indication: DYSPEPSIA
     Dosage: UNK
     Dates: start: 20070509
  7. IMIPRAMINE [Concomitant]
     Indication: ANXIETY
     Dosage: UNK
     Dates: start: 19890101
  8. IMIPRAMINE HCL [Concomitant]
     Dosage: 50 MG, QD
     Route: 048
  9. RANITIDINE [Concomitant]
     Dosage: 150 MG, UNK
     Route: 048
  10. YASMIN [Suspect]
     Dosage: UNK
     Route: 048
     Dates: start: 20040601, end: 20080801
  11. TRI-SPRINTEC [Concomitant]
     Dosage: UNK
     Dates: end: 20040801

REACTIONS (5)
  - PAIN [None]
  - INJURY [None]
  - GALLBLADDER DISORDER [None]
  - CHOLELITHIASIS [None]
  - CHOLECYSTITIS CHRONIC [None]
